FAERS Safety Report 13588329 (Version 1)
Quarter: 2017Q2

REPORT INFORMATION
  Report Type: Report from Study
  Country: None (occurrence: US)
  Receive Date: 20170528
  Receipt Date: 20170528
  Transmission Date: 20170830
  Serious: Yes (Other)
  Sender: FDA-Public Use
  Company Number: US-ABBVIE-17K-163-1987940-00

PATIENT
  Age: 74 Year
  Sex: Female

DRUGS (2)
  1. HUMIRA [Suspect]
     Active Substance: ADALIMUMAB
     Route: 058
     Dates: start: 201705
  2. HUMIRA [Suspect]
     Active Substance: ADALIMUMAB
     Indication: PRODUCT USED FOR UNKNOWN INDICATION
     Route: 058

REACTIONS (6)
  - Osteoarthritis [Not Recovered/Not Resolved]
  - Foot deformity [Unknown]
  - Rheumatoid arthritis [Not Recovered/Not Resolved]
  - Medical device site pain [Unknown]
  - Burning sensation [Unknown]
  - Dyskinesia [Unknown]

NARRATIVE: CASE EVENT DATE: 201705
